FAERS Safety Report 4801674-3 (Version None)
Quarter: 2005Q4

REPORT INFORMATION
  Report Type: 
  Country: None (occurrence: None)
  Receive Date: 20051018
  Receipt Date: 20050722
  Transmission Date: 20060501
  Serious: Yes (Other)
  Sender: FDA-Public Use
  Company Number: US-GLAXOSMITHKLINE-A0567272A

PATIENT
  Age: 24 Year
  Sex: Male
  Weight: 81.8 kg

DRUGS (6)
  1. WELLBUTRIN XL [Suspect]
     Indication: DEPRESSION
     Route: 048
     Dates: start: 20030101, end: 20050101
  2. WELLBUTRIN [Suspect]
     Route: 045
  3. XANAX [Concomitant]
     Indication: ANXIETY
     Dosage: 2MG TWICE PER DAY
     Route: 048
  4. CLOMIPRAMINE HCL [Concomitant]
     Indication: OBSESSIVE-COMPULSIVE DISORDER
     Dosage: 150MG PER DAY
     Route: 048
  5. RISPERDAL [Concomitant]
     Dosage: 1MG AT NIGHT
     Route: 048
  6. ABILIFY [Concomitant]
     Dosage: 30MG IN THE MORNING
     Route: 048

REACTIONS (3)
  - EUPHORIC MOOD [None]
  - GRAND MAL CONVULSION [None]
  - INCORRECT ROUTE OF DRUG ADMINISTRATION [None]
